FAERS Safety Report 7388597-3 (Version None)
Quarter: 2011Q2

REPORT INFORMATION
  Report Type: 
  Country: None (occurrence: None)
  Receive Date: 20110401
  Receipt Date: 20110318
  Transmission Date: 20111010
  Serious: Yes (Disabling, Other)
  Sender: FDA-Public Use
  Company Number: US-BAYER-2011-024659

PATIENT
  Sex: Male

DRUGS (1)
  1. AVELOX [Suspect]
     Dosage: UNK
     Route: 048
     Dates: start: 20110301, end: 20110301

REACTIONS (4)
  - EYE SWELLING [None]
  - LIP SWELLING [None]
  - ANGIOEDEMA [None]
  - ANAPHYLACTIC REACTION [None]
